FAERS Safety Report 9147684 (Version 1)
Quarter: 2013Q1

REPORT INFORMATION
  Report Type: Spontaneous
  Country: GB (occurrence: GB)
  Receive Date: 20130307
  Receipt Date: 20130307
  Transmission Date: 20140127
  Serious: Yes (Other)
  Sender: FDA-Public Use
  Company Number: GB-B.I. PHARMACEUTICALS,INC./RIDGEFIELD-2013-UK-00292UK

PATIENT
  Age: 72 Year
  Sex: Female

DRUGS (5)
  1. PRADAXA [Suspect]
     Indication: ATRIAL FIBRILLATION
     Route: 048
     Dates: start: 20130106, end: 20130118
  2. AMIAS [Concomitant]
  3. CALCIUM CARBONATE [Concomitant]
  4. CANDESARTAN [Concomitant]
  5. EZETIMIBE [Concomitant]

REACTIONS (1)
  - Headache [Not Recovered/Not Resolved]
